FAERS Safety Report 9126748 (Version 1)
Quarter: 2013Q1

REPORT INFORMATION
  Report Type: Spontaneous
  Country: BR (occurrence: BR)
  Receive Date: 20130228
  Receipt Date: 20130228
  Transmission Date: 20140127
  Serious: Yes (Other)
  Sender: FDA-Public Use
  Company Number: BR-BAYER-2013-022968

PATIENT
  Sex: Female

DRUGS (1)
  1. YAZ [Suspect]
     Dosage: UNK
     Route: 048
     Dates: start: 20130218

REACTIONS (6)
  - Visual impairment [None]
  - Syncope [None]
  - Convulsion [None]
  - Feeling cold [None]
  - Cyanosis [None]
  - Paraesthesia [None]
